FAERS Safety Report 10081431 (Version 1)
Quarter: 2014Q2

REPORT INFORMATION
  Report Type: Spontaneous
  Country: US (occurrence: None)
  Receive Date: 20140415
  Receipt Date: 20140415
  Transmission Date: 20141212
  Serious: Yes (Other)
  Sender: FDA-Public Use
  Company Number: None

PATIENT
  Age: 61 Year
  Sex: Female
  Weight: 87.6 kg

DRUGS (1)
  1. ZYVOX [Suspect]
     Indication: INFECTION
     Route: 042
     Dates: start: 20140405, end: 20140406

REACTIONS (1)
  - Rash erythematous [None]
